FAERS Safety Report 5781752-5 (Version None)
Quarter: 2008Q2

REPORT INFORMATION
  Report Type: 
  Country: None (occurrence: None)
  Receive Date: 20080623
  Receipt Date: 20071019
  Transmission Date: 20081010
  Serious: No
  Sender: FDA-Public Use
  Company Number: US-ASTRAZENECA-2007UW24369

PATIENT
  Age: 85 Year
  Sex: Female

DRUGS (4)
  1. RHINOCORT [Suspect]
     Dosage: 32 UG, TWO SPRAYS QD
     Route: 045
  2. CARDIZEM [Concomitant]
  3. COUMADIN [Concomitant]
  4. PRAVACHOL [Concomitant]

REACTIONS (1)
  - DIZZINESS [None]
